FAERS Safety Report 7339865-2 (Version None)
Quarter: 2011Q1

REPORT INFORMATION
  Report Type: 
  Country: None (occurrence: None)
  Receive Date: 20110309
  Receipt Date: 20110221
  Transmission Date: 20110831
  Serious: Yes (Other)
  Sender: FDA-Public Use
  Company Number: DE-BAYER-2011-000385

PATIENT
  Sex: Male

DRUGS (1)
  1. BETAFERON [Suspect]
     Dosage: UNK
     Route: 058
     Dates: end: 20081201

REACTIONS (3)
  - INJECTION SITE NODULE [None]
  - PYODERMA GANGRENOSUM [None]
  - CALCINOSIS [None]
